FAERS Safety Report 9400357 (Version 1)
Quarter: 2013Q3

REPORT INFORMATION
  Report Type: Spontaneous
  Country: US (occurrence: None)
  Receive Date: 20130712
  Receipt Date: 20130712
  Transmission Date: 20140515
  Serious: No
  Sender: FDA-Public Use
  Company Number: None

PATIENT
  Sex: Female

DRUGS (1)
  1. ENBREL [Suspect]
     Dosage: 50 MG ONCE PER WEEK SUBQ
     Route: 058
     Dates: start: 20130413, end: 20130711

REACTIONS (3)
  - Contusion [None]
  - Chest pain [None]
  - Vein discolouration [None]
